FAERS Safety Report 20074665 (Version 1)
Quarter: 2021Q4

REPORT INFORMATION
  Report Type: Spontaneous
  Country: FR (occurrence: FR)
  Receive Date: 20211116
  Receipt Date: 20211116
  Transmission Date: 20220303
  Serious: Yes (Life-Threatening, Other)
  Sender: FDA-Public Use
  Company Number: None

PATIENT
  Age: 73 Year
  Sex: Female
  Weight: 69 kg

DRUGS (6)
  1. ROCURONIUM [Suspect]
     Active Substance: ROCURONIUM BROMIDE
     Indication: General anaesthesia
     Dosage: 40 MILLIGRAM, TOTAL
     Route: 042
     Dates: start: 20210805, end: 20210805
  2. KETAMINE [Concomitant]
     Active Substance: KETAMINE
     Indication: General anaesthesia
     Dosage: 30 MILLIGRAM, TOTAL
     Route: 042
     Dates: start: 20210805, end: 20210805
  3. CATAPRESSAN                        /00171101/ [Concomitant]
     Indication: General anaesthesia
     Dosage: 30 MILLIGRAM, TOTAL
     Route: 042
     Dates: start: 20210805, end: 20210805
  4. DEXAMETHASONE [Concomitant]
     Active Substance: DEXAMETHASONE
     Indication: General anaesthesia
     Dosage: 30 MILLIGRAM, TOTAL
     Route: 042
     Dates: start: 20210805, end: 20210805
  5. LIDOCAINE [Concomitant]
     Active Substance: LIDOCAINE
     Indication: General anaesthesia
     Dosage: 100 MILLIGRAM, TOTAL
     Route: 042
     Dates: start: 20210805, end: 20210805
  6. PROPOFOL [Concomitant]
     Active Substance: PROPOFOL
     Indication: General anaesthesia
     Dosage: 30 MILLIGRAM, TOTAL
     Route: 042
     Dates: start: 20210805, end: 20210805

REACTIONS (2)
  - Cardio-respiratory arrest [Recovered/Resolved]
  - Anaphylactic shock [Recovered/Resolved]

NARRATIVE: CASE EVENT DATE: 20210805
